FAERS Safety Report 10281760 (Version 3)
Quarter: 2014Q4

REPORT INFORMATION
  Report Type: Report from Study
  Country: JP (occurrence: JP)
  Receive Date: 20140707
  Receipt Date: 20141010
  Transmission Date: 20150528
  Serious: Yes (Hospitalization)
  Sender: FDA-Public Use
  Company Number: JP-SA-2014SA087993

PATIENT
  Age: 62 Year
  Sex: Male
  Weight: 52.2 kg

DRUGS (14)
  1. LOBU [Concomitant]
     Active Substance: LOBUCAVIR
  2. BRONUCK [Concomitant]
     Dates: end: 20140130
  3. METHYCOBAL [Concomitant]
     Active Substance: METHYLCOBALAMIN
  4. LASIX [Concomitant]
     Active Substance: FUROSEMIDE
     Route: 048
     Dates: end: 20140130
  5. METHYCOBAL [Concomitant]
     Active Substance: METHYLCOBALAMIN
     Route: 048
     Dates: end: 20140130
  6. FEBURIC [Concomitant]
     Active Substance: FEBUXOSTAT
  7. LOBU [Concomitant]
     Active Substance: LOBUCAVIR
     Route: 048
     Dates: end: 20140130
  8. BRONUCK [Concomitant]
  9. PLAVIX [Suspect]
     Active Substance: CLOPIDOGREL BISULFATE
     Indication: PERIPHERAL ARTERIAL OCCLUSIVE DISEASE
     Route: 048
     Dates: start: 20130528, end: 20140130
  10. ARTIST [Concomitant]
     Active Substance: CARVEDILOL
     Route: 048
     Dates: end: 20140130
  11. EXFORGE [Concomitant]
     Active Substance: AMLODIPINE BESYLATE\VALSARTAN
     Route: 048
     Dates: end: 20131107
  12. FEBURIC [Concomitant]
     Active Substance: FEBUXOSTAT
     Route: 048
     Dates: end: 20140130
  13. TRAZENTA [Concomitant]
     Active Substance: LINAGLIPTIN
     Route: 048
     Dates: end: 20131107
  14. REGPARA [Concomitant]
     Active Substance: CINACALCET HYDROCHLORIDE
     Route: 048
     Dates: end: 20140130

REACTIONS (2)
  - Drug ineffective [Unknown]
  - Ischaemic ulcer [Recovered/Resolved with Sequelae]

NARRATIVE: CASE EVENT DATE: 20130826
